FAERS Safety Report 10670365 (Version 4)
Quarter: 2015Q2

REPORT INFORMATION
  Report Type: Report from Study
  Country: JP (occurrence: JP)
  Receive Date: 20141223
  Receipt Date: 20150629
  Transmission Date: 20150821
  Serious: Yes (Hospitalization, Other)
  Sender: FDA-Public Use
  Company Number: JP-ALEXION PHARMACEUTICALS INC-A201404782

PATIENT

DRUGS (5)
  1. SOLIRIS [Suspect]
     Active Substance: ECULIZUMAB
     Indication: PAROXYSMAL NOCTURNAL HAEMOGLOBINURIA
     Dosage: 600 MG, QW
     Route: 042
     Dates: start: 20101028, end: 20101118
  2. SOLIRIS [Suspect]
     Active Substance: ECULIZUMAB
     Dosage: 900 MG, Q2W
     Route: 042
     Dates: start: 20101124
  3. PREDONINE [Concomitant]
     Active Substance: PREDNISOLONE\PREDNISOLONE ACETATE\PREDNISOLONE SODIUM SUCCINATE
     Indication: PAROXYSMAL NOCTURNAL HAEMOGLOBINURIA
     Dosage: 7.5 MG, DAILY
     Route: 065
     Dates: start: 1990, end: 20101206
  4. PREDONINE [Concomitant]
     Active Substance: PREDNISOLONE\PREDNISOLONE ACETATE\PREDNISOLONE SODIUM SUCCINATE
     Dosage: UNK
     Route: 065
  5. WARFARIN [Concomitant]
     Active Substance: WARFARIN
     Indication: PAROXYSMAL NOCTURNAL HAEMOGLOBINURIA
     Dosage: 3 MG, DAILY
     Route: 065
     Dates: start: 20080110

REACTIONS (7)
  - Pneumonia [Recovering/Resolving]
  - Condition aggravated [Unknown]
  - Immunodeficiency [Unknown]
  - Pneumonia fungal [Recovering/Resolving]
  - Neutrophil count decreased [Unknown]
  - Gastroenteritis [Recovered/Resolved]
  - Haemolytic anaemia [Unknown]

NARRATIVE: CASE EVENT DATE: 20141009
